FAERS Safety Report 16099120 (Version 2)
Quarter: 2019Q2

REPORT INFORMATION
  Report Type: Spontaneous
  Country: NL (occurrence: NL)
  Receive Date: 20190321
  Receipt Date: 20190405
  Transmission Date: 20190711
  Serious: Yes (Hospitalization)
  Sender: FDA-Public Use
  Company Number: NL-TEVA-2019-NL-1026937

PATIENT
  Age: 8 Decade
  Sex: Female

DRUGS (8)
  1. ALENDRONIC ACID [Concomitant]
     Active Substance: ALENDRONIC ACID
  2. SIMVASTATIN. [Concomitant]
     Active Substance: SIMVASTATIN
     Route: 065
  3. PANTOPRAZOLE [Concomitant]
     Active Substance: PANTOPRAZOLE
     Route: 065
  4. NEBIVOLOL. [Concomitant]
     Active Substance: NEBIVOLOL
     Route: 065
  5. METOCLOPRAMIDE. [Concomitant]
     Active Substance: METOCLOPRAMIDE
     Route: 065
  6. BUDESONIDE. [Concomitant]
     Active Substance: BUDESONIDE
     Route: 065
  7. ONDANSETRON [Concomitant]
     Active Substance: ONDANSETRON
  8. CAPECITABINE. [Suspect]
     Active Substance: CAPECITABINE
     Indication: COLON CANCER
     Route: 065

REACTIONS (1)
  - Enteritis [Recovered/Resolved]
